FAERS Safety Report 4304550-8 (Version None)
Quarter: 2004Q1

REPORT INFORMATION
  Report Type: 
  Country: None (occurrence: None)
  Receive Date: 20040225
  Receipt Date: 20040225
  Transmission Date: 20041129
  Serious: Yes (Life-Threatening)
  Sender: FDA-Public Use
  Company Number: None

PATIENT
  Sex: Female
  Weight: 54.4316 kg

DRUGS (6)
  1. ENBREL [Suspect]
     Indication: ANKYLOSING SPONDYLITIS
     Dosage: DAILY SUBCUT
  2. ENBREL [Suspect]
     Indication: SYSTEMIC LUPUS ERYTHEMATOSUS
     Dosage: DAILY SUBCUT
  3. CELEBREX [Concomitant]
  4. PLAQUENIL [Concomitant]
  5. NEXIUM [Concomitant]
  6. SINGULAIR [Concomitant]

REACTIONS (1)
  - SPLENIC RUPTURE [None]
